FAERS Safety Report 4626163-0 (Version None)
Quarter: 2005Q2

REPORT INFORMATION
  Report Type: 
  Country: None (occurrence: None)
  Receive Date: 20050331
  Receipt Date: 20040608
  Transmission Date: 20051028
  Serious: Yes (Other)
  Sender: FDA-Public Use
  Company Number: 200412842BCC

PATIENT
  Sex: Female
  Weight: 54.4316 kg

DRUGS (1)
  1. ALEVE (CAPLET) [Suspect]
     Indication: HEADACHE
     Dosage: 440 MG, TOTAL DAILY, ORAL
     Route: 048
     Dates: start: 20040607, end: 20040608

REACTIONS (2)
  - GASTRIC HAEMORRHAGE [None]
  - PAIN [None]
